FAERS Safety Report 11052436 (Version 1)
Quarter: 2015Q2

REPORT INFORMATION
  Report Type: Spontaneous
  Country: SG (occurrence: SG)
  Receive Date: 20150421
  Receipt Date: 20150421
  Transmission Date: 20150821
  Serious: Yes (Hospitalization)
  Sender: FDA-Public Use
  Company Number: SG-009507513-1504SGP011329

PATIENT
  Age: 68 Year
  Sex: Male

DRUGS (2)
  1. ARCOXIA [Interacting]
     Active Substance: ETORICOXIB
     Indication: GOUT
     Dosage: 90 MG, DAILY
     Route: 048
     Dates: start: 20150123
  2. OMEPRAZOLE. [Suspect]
     Active Substance: OMEPRAZOLE
     Dosage: UNK
     Route: 048

REACTIONS (3)
  - Mouth ulceration [Recovered/Resolved]
  - Drug eruption [Recovered/Resolved]
  - Genital ulceration [Recovered/Resolved]

NARRATIVE: CASE EVENT DATE: 20150123
